FAERS Safety Report 8154365-8 (Version None)
Quarter: 2012Q1

REPORT INFORMATION
  Report Type: 
  Country: None (occurrence: None)
  Receive Date: 20120221
  Receipt Date: 20120210
  Transmission Date: 20120608
  Serious: Yes (Hospitalization, Other)
  Sender: FDA-Public Use
  Company Number: US-PERRIGO-12US001200

PATIENT
  Sex: Male
  Weight: 136.5 kg

DRUGS (1)
  1. DAYTIME PE LIQGL 994 [Suspect]
     Indication: NASAL CONGESTION
     Dosage: SINGLE DOSE
     Route: 048
     Dates: start: 20120208, end: 20120208

REACTIONS (2)
  - HYPERSENSITIVITY [None]
  - DYSPNOEA [None]
